FAERS Safety Report 17412838 (Version 1)
Quarter: 2020Q1

REPORT INFORMATION
  Report Type: Spontaneous
  Country: US (occurrence: US)
  Receive Date: 20200212
  Receipt Date: 20200212
  Transmission Date: 20200409
  Serious: Yes (Life-Threatening)
  Sender: FDA-Public Use
  Company Number: None

PATIENT
  Age: 39 Year
  Sex: Male

DRUGS (2)
  1. DEXAMETHASONE. [Suspect]
     Active Substance: DEXAMETHASONE
  2. AXICABTAGENE CILOLEUCEL [Suspect]
     Active Substance: AXICABTAGENE CILOLEUCEL

REACTIONS (9)
  - Speech disorder [None]
  - Disease progression [None]
  - Bacteraemia [None]
  - Neurotoxicity [None]
  - Dysphagia [None]
  - Dysphonia [None]
  - Diffuse large B-cell lymphoma refractory [None]
  - Lymphocyte adoptive therapy [None]
  - Diffuse large B-cell lymphoma recurrent [None]

NARRATIVE: CASE EVENT DATE: 20190628
